FAERS Safety Report 18899590 (Version 1)
Quarter: 2021Q1

REPORT INFORMATION
  Report Type: Spontaneous
  Country: DE (occurrence: DE)
  Receive Date: 20210216
  Receipt Date: 20210216
  Transmission Date: 20210420
  Serious: Yes (Hospitalization, Other)
  Sender: FDA-Public Use
  Company Number: DE-SA-2021SA050806

PATIENT
  Age: 12 Year
  Sex: Male
  Weight: 45 kg

DRUGS (1)
  1. APIDRA [Suspect]
     Active Substance: INSULIN GLULISINE
     Indication: TYPE 1 DIABETES MELLITUS
     Dosage: UNK
     Route: 058

REACTIONS (5)
  - Ketonuria [Unknown]
  - Hyperglycaemia [Unknown]
  - Product administration error [Unknown]
  - Diabetes mellitus inadequate control [Unknown]
  - Treatment noncompliance [Unknown]

NARRATIVE: CASE EVENT DATE: 20200511
